FAERS Safety Report 7866896-6 (Version None)
Quarter: 2011Q4

REPORT INFORMATION
  Report Type: 
  Country: None (occurrence: None)
  Receive Date: 20111028
  Receipt Date: 20111018
  Transmission Date: 20120403
  Serious: Yes (Hospitalization)
  Sender: FDA-Public Use
  Company Number: US-ROCHE-1000451

PATIENT
  Sex: Female
  Weight: 43 kg

DRUGS (2)
  1. TARCEVA [Suspect]
     Indication: LUNG NEOPLASM MALIGNANT
     Route: 048
     Dates: start: 20110701, end: 20110707
  2. PEMETREXED DISODIUM [Suspect]
     Indication: LUNG NEOPLASM MALIGNANT
     Route: 042
     Dates: start: 20110630

REACTIONS (3)
  - DYSPHAGIA [None]
  - DECREASED APPETITE [None]
  - CELLULITIS [None]
